FAERS Safety Report 13702256 (Version 2)
Quarter: 2017Q3

REPORT INFORMATION
  Report Type: Report from Study
  Country: US (occurrence: US)
  Receive Date: 20170629
  Receipt Date: 20170830
  Transmission Date: 20171127
  Serious: Yes (Death)
  Sender: FDA-Public Use
  Company Number: US-PFIZER INC-2017280498

PATIENT
  Age: 27 Year
  Sex: Female

DRUGS (9)
  1. CODEINE [Concomitant]
     Active Substance: CODEINE
     Dosage: UNK
  2. HYDROXYZINE [Concomitant]
     Active Substance: HYDROXYZINE HYDROCHLORIDE
     Dosage: UNK
  3. COCAINE [Suspect]
     Active Substance: COCAINE
     Dosage: UNK
  4. FENTANYL CITRATE. [Suspect]
     Active Substance: FENTANYL CITRATE
     Dosage: UNK
  5. BENZOYLECGONINE [Concomitant]
     Active Substance: BENZOYLECGONINE
     Dosage: UNK
  6. CHLORCYCLIZINE [Concomitant]
     Active Substance: CHLORCYCLIZINE
     Dosage: UNK
  7. HEROIN [Suspect]
     Active Substance: DIAMORPHINE
     Dosage: UNK
  8. MORPHINE [Concomitant]
     Active Substance: MORPHINE
     Dosage: UNK
  9. METHYLECGONINE [Concomitant]
     Active Substance: ECGONINE METHYL ESTER
     Dosage: UNK

REACTIONS (1)
  - Toxicity to various agents [Fatal]
